FAERS Safety Report 25519283 (Version 2)
Quarter: 2025Q3

REPORT INFORMATION
  Report Type: Report from Study
  Country: IN (occurrence: IN)
  Receive Date: 20250704
  Receipt Date: 20250809
  Transmission Date: 20251021
  Serious: Yes (Other)
  Sender: ALEXION PHARMACEUTICALS
  Company Number: IN-AstraZeneca-CH-00900928A

PATIENT
  Age: 78 Year
  Sex: Female
  Weight: 46 kg

DRUGS (1)
  1. OLAPARIB [Suspect]
     Active Substance: OLAPARIB
     Indication: Ovarian cancer
     Dosage: 150 MILLIGRAM, QD

REACTIONS (3)
  - Thrombosis [Unknown]
  - Thrombosis [Unknown]
  - Haemoglobin decreased [Unknown]
